FAERS Safety Report 9548343 (Version 2)
Quarter: 2013Q4

REPORT INFORMATION
  Report Type: Spontaneous
  Country: US (occurrence: US)
  Receive Date: 20130924
  Receipt Date: 20131004
  Transmission Date: 20140711
  Serious: Yes (Hospitalization)
  Sender: FDA-Public Use
  Company Number: US-009507513-1309USA006887

PATIENT
  Sex: Male

DRUGS (1)
  1. LOTRIMIN AF LIQUID SPRAY [Suspect]
     Indication: TINEA PEDIS
     Route: 061

REACTIONS (1)
  - Burns second degree [Unknown]
